FAERS Safety Report 12450395 (Version 1)
Quarter: 2016Q2

REPORT INFORMATION
  Report Type: Spontaneous
  Country: US (occurrence: None)
  Receive Date: 20160608
  Receipt Date: 20160608
  Transmission Date: 20160815
  Serious: Yes (Life-Threatening, Disabling)
  Sender: FDA-Public Use
  Company Number: None

PATIENT
  Age: 60 Year
  Sex: Female
  Weight: 91.17 kg

DRUGS (11)
  1. VENLAFAXINE [Concomitant]
     Active Substance: VENLAFAXINE HYDROCHLORIDE
  2. AMITRIPTYLINE [Concomitant]
     Active Substance: AMITRIPTYLINE
  3. METFORMIN [Concomitant]
     Active Substance: METFORMIN HYDROCHLORIDE
  4. ESTRADIOL. [Concomitant]
     Active Substance: ESTRADIOL
  5. TRIAMTERENE-HCTZ, 37.5 MG SANDOZ [Suspect]
     Active Substance: HYDROCHLOROTHIAZIDE\TRIAMTERENE
     Indication: MENIERE^S DISEASE
     Dosage: 3 1/2 TAB ONCE A DAY TAKEN BY MOUTH
     Route: 048
     Dates: start: 20160523, end: 20160529
  6. HYDROXYINE HCL [Concomitant]
     Active Substance: HYDROXYZINE HYDROCHLORIDE
  7. DRAMAMNINE [Concomitant]
  8. ADVIL [Concomitant]
     Active Substance: IBUPROFEN
  9. MS CONTIN [Concomitant]
     Active Substance: MORPHINE SULFATE
  10. PANTOPRAZOLE [Concomitant]
     Active Substance: PANTOPRAZOLE SODIUM
  11. LORAZEPAM. [Concomitant]
     Active Substance: LORAZEPAM

REACTIONS (3)
  - Dyspnoea [None]
  - Chest pain [None]
  - Presyncope [None]

NARRATIVE: CASE EVENT DATE: 20160529
